FAERS Safety Report 25406602 (Version 2)
Quarter: 2025Q3

REPORT INFORMATION
  Report Type: Spontaneous
  Country: US (occurrence: US)
  Receive Date: 20250606
  Receipt Date: 20250908
  Transmission Date: 20251021
  Serious: Yes (Life-Threatening, Hospitalization, Other)
  Sender: JUBILANT
  Company Number: US-JUBILANT CADISTA PHARMACEUTICALS-2025US000612

PATIENT
  Age: 23 Year
  Sex: Female

DRUGS (19)
  1. PREGABALIN [Suspect]
     Active Substance: PREGABALIN
     Indication: Agitation
     Dosage: 450 MG, ONCE PER DAY
     Route: 065
  2. PREGABALIN [Suspect]
     Active Substance: PREGABALIN
     Indication: Pain
  3. ISONIAZID [Suspect]
     Active Substance: ISONIAZID
     Indication: Pulmonary tuberculosis
     Route: 065
  4. LITHIUM [Suspect]
     Active Substance: LITHIUM
     Indication: Agitation
     Dosage: 600 MG, ONCE PER DAY (TITRATED TO 600 MG/DAY)
     Route: 065
  5. LITHIUM [Suspect]
     Active Substance: LITHIUM
     Indication: Abnormal behaviour
     Dosage: 900 MG, ONCE PER DAY
     Route: 065
  6. LITHIUM [Suspect]
     Active Substance: LITHIUM
     Indication: Aggression
  7. OXYCODONE [Suspect]
     Active Substance: OXYCODONE
     Indication: Agitation
     Route: 065
  8. OXYCODONE [Suspect]
     Active Substance: OXYCODONE
     Indication: Pain
     Route: 065
  9. VALPROIC ACID [Suspect]
     Active Substance: VALPROIC ACID
     Indication: Agitation
     Dosage: 2 G, ONCE PER DAY
     Route: 065
  10. VALPROIC ACID [Suspect]
     Active Substance: VALPROIC ACID
  11. RIFAMPIN [Concomitant]
     Active Substance: RIFAMPIN
     Indication: Pulmonary tuberculosis
     Route: 065
  12. PYRAZINAMIDE [Concomitant]
     Active Substance: PYRAZINAMIDE
     Indication: Pulmonary tuberculosis
     Route: 065
  13. ETHAMBUTOL [Concomitant]
     Active Substance: ETHAMBUTOL HYDROCHLORIDE
     Indication: Pulmonary tuberculosis
     Route: 065
  14. GUANFACINE [Concomitant]
     Active Substance: GUANFACINE
     Indication: Agitation
     Dosage: 6 MG, ONCE PER DAY
     Route: 065
  15. LORAZEPAM [Concomitant]
     Active Substance: LORAZEPAM
     Indication: Agitation
     Dosage: 18 MG, ONCE PER DAY
     Route: 065
  16. LORAZEPAM [Concomitant]
     Active Substance: LORAZEPAM
     Dosage: UNK, UNK (SLOWLY REDUCED TO 6 MG/DAY OVER THREE WEEKS.)
     Route: 065
  17. HALOPERIDOL [Concomitant]
     Active Substance: HALOPERIDOL
     Indication: Agitation
     Dosage: 15 MG, ONCE PER DAY
     Route: 042
  18. RAMELTEON [Concomitant]
     Active Substance: RAMELTEON
     Indication: Sleep disorder
     Route: 065
  19. DARIDOREXANT [Concomitant]
     Active Substance: DARIDOREXANT
     Indication: Sleep disorder
     Route: 065

REACTIONS (1)
  - Serotonin syndrome [Not Recovered/Not Resolved]
